FAERS Safety Report 23673045 (Version 1)
Quarter: 2024Q1

REPORT INFORMATION
  Report Type: Spontaneous
  Country: FR (occurrence: FR)
  Receive Date: 20240326
  Receipt Date: 20240326
  Transmission Date: 20240409
  Serious: Yes (Other)
  Sender: FDA-Public Use
  Company Number: None

PATIENT
  Age: 19 Year
  Sex: Female
  Weight: 64 kg

DRUGS (1)
  1. METHOTREXATE [Suspect]
     Active Substance: METHOTREXATE
     Indication: Juvenile spondyloarthritis
     Dates: start: 20180716, end: 202305

REACTIONS (1)
  - Hepatic cytolysis [Not Recovered/Not Resolved]

NARRATIVE: CASE EVENT DATE: 20220101
